FAERS Safety Report 20797591 (Version 4)
Quarter: 2024Q2

REPORT INFORMATION
  Report Type: Spontaneous
  Country: US (occurrence: US)
  Receive Date: 20220506
  Receipt Date: 20240423
  Transmission Date: 20240715
  Serious: No
  Sender: FDA-Public Use
  Company Number: US-PFIZER INC-202200470678

PATIENT
  Age: 54 Year
  Sex: Male

DRUGS (3)
  1. INLYTA [Suspect]
     Active Substance: AXITINIB
     Dosage: 5 MG (UNSPECIFIED FREQUENCY)
  2. INLYTA [Suspect]
     Active Substance: AXITINIB
     Dosage: TAKE 2 TABLETS BY MOUTH TWICE A DAY
     Route: 048
  3. INLYTA [Suspect]
     Active Substance: AXITINIB
     Dosage: TAKE 2 1 MG TABLETS TWICE DAILY
     Route: 048

REACTIONS (4)
  - Bone pain [Unknown]
  - Weight decreased [Unknown]
  - Rash [Unknown]
  - Arthralgia [Unknown]
